FAERS Safety Report 16499330 (Version 3)
Quarter: 2021Q3

REPORT INFORMATION
  Report Type: Report from Study
  Country: JP (occurrence: JP)
  Receive Date: 20190701
  Receipt Date: 20210707
  Transmission Date: 20211014
  Serious: Yes (Death, Life-Threatening, Hospitalization, Other)
  Sender: FDA-Public Use
  Company Number: JP-ASTELLAS-2019JP005695

PATIENT
  Age: 69 Year
  Sex: Female
  Weight: 45 kg

DRUGS (24)
  1. ASP2215 [Suspect]
     Active Substance: GILTERITINIB
     Route: 048
     Dates: start: 20190502, end: 20190523
  2. MEROPENEM. [Concomitant]
     Active Substance: MEROPENEM
     Indication: FEBRILE NEUTROPENIA
     Dosage: 1 G/DAY, UNKNOWN FREQ.
     Route: 065
     Dates: start: 20190318, end: 20190401
  3. MEROPENEM. [Concomitant]
     Active Substance: MEROPENEM
     Dosage: 3 G/DAY, UNKNOWN FREQ.
     Route: 065
     Dates: start: 20190405, end: 20190406
  4. LEVOFLOXACIN HEMIHYDRATE [Concomitant]
     Active Substance: LEVOFLOXACIN
     Dosage: 500 MG/DAY, UNKNOWN FREQ.
     Route: 065
     Dates: start: 20190430, end: 20190507
  5. DAIPHEN [Concomitant]
     Active Substance: SULFAMETHOXAZOLE\TRIMETHOPRIM
     Indication: PROPHYLAXIS
     Dosage: 1 DF/DAY, UNKNOWN FREQ.
     Route: 048
     Dates: end: 20190528
  6. FUNGUARD [Concomitant]
     Active Substance: MICAFUNGIN SODIUM
     Indication: FEBRILE NEUTROPENIA
     Dosage: 100 MG/DAY, UNKNOWN FREQ.
     Route: 065
     Dates: start: 20190318, end: 20190325
  7. AMIKACIN SULFATE. [Concomitant]
     Active Substance: AMIKACIN SULFATE
     Indication: FEBRILE NEUTROPENIA
     Dosage: 400 MG/DAY, UNKNOWN FREQ.
     Route: 065
     Dates: start: 20190408, end: 20190421
  8. BROTIZOLAM [Concomitant]
     Active Substance: BROTIZOLAM
     Indication: SYMPTOMATIC TREATMENT
     Dosage: 0.25 MG/DAY, UNKNOWN FREQ.
     Route: 048
     Dates: start: 20190416, end: 20190528
  9. CEFEPIME DIHYDROCHLORIDE [Concomitant]
     Active Substance: CEFEPIME HYDROCHLORIDE
     Indication: FEBRILE NEUTROPENIA
     Dosage: 2 G/DAY, UNKNOWN FREQ.
     Route: 065
     Dates: start: 20190314, end: 20190318
  10. FUNGUARD [Concomitant]
     Active Substance: MICAFUNGIN SODIUM
     Dosage: 150 MG/DAY, UNKNOWN FREQ.
     Route: 065
     Dates: start: 20190527, end: 20190530
  11. ASP2215 [Suspect]
     Active Substance: GILTERITINIB
     Route: 048
     Dates: start: 20190416, end: 20190501
  12. CEFEPIME DIHYDROCHLORIDE [Concomitant]
     Active Substance: CEFEPIME HYDROCHLORIDE
     Dosage: 4 G/DAY, UNKNOWN FREQ.
     Route: 065
     Dates: start: 20190403, end: 20190405
  13. LEVOFLOXACIN HEMIHYDRATE [Concomitant]
     Active Substance: LEVOFLOXACIN
     Indication: FEBRILE NEUTROPENIA
     Dosage: 500 MG/DAY, UNKNOWN FREQ.
     Route: 065
     Dates: start: 20190406, end: 20190421
  14. MAGMITT [Concomitant]
     Active Substance: MAGNESIUM OXIDE
     Indication: SYMPTOMATIC TREATMENT
     Dosage: 660 MG/DAY, UNKNOWN FREQ.
     Route: 048
     Dates: start: 20190505, end: 20190528
  15. TAZOPIPE [Concomitant]
     Active Substance: PIPERACILLIN SODIUM\TAZOBACTAM SODIUM
     Indication: FEBRILE NEUTROPENIA
     Dosage: 13.5 G/DAY, UNKNOWN FREQ.
     Route: 065
     Dates: start: 20190508, end: 20190516
  16. ASP2215 [Suspect]
     Active Substance: GILTERITINIB
     Indication: ACUTE MYELOID LEUKAEMIA RECURRENT
     Route: 048
     Dates: start: 20190312, end: 20190415
  17. RECOMODULIN [Concomitant]
     Active Substance: THROMBOMODULIN ALFA
     Indication: DISSEMINATED INTRAVASCULAR COAGULATION
     Dosage: 12800U/DAY, UNKNOWN FREQ.
     Route: 065
     Dates: start: 20190320, end: 20190324
  18. AMIKACIN SULFATE. [Concomitant]
     Active Substance: AMIKACIN SULFATE
     Dosage: 600 MG/DAY, UNKNOWN FREQ.
     Route: 065
     Dates: start: 20190513, end: 20190527
  19. FUNGUARD [Concomitant]
     Active Substance: MICAFUNGIN SODIUM
     Dosage: 150 MG/DAY, UNKNOWN FREQ.
     Route: 065
     Dates: start: 20190403, end: 20190408
  20. ASPARA?CA [Concomitant]
     Active Substance: CALCIUM ASPARTATE
     Indication: HYPOCALCAEMIA
     Dosage: 1.2 G/DAY, UNKNOWN FREQ.
     Route: 048
     Dates: end: 20190528
  21. ASPARA K [Concomitant]
     Active Substance: POTASSIUM ASPARTATE
     Indication: HYPOKALAEMIA
     Dosage: 1.8 G/DAY, UNKNOWN FREQ.
     Route: 048
     Dates: end: 20190528
  22. VANCOMYCIN HYDROCHLORIDE. [Concomitant]
     Active Substance: VANCOMYCIN HYDROCHLORIDE
     Indication: PSEUDOMEMBRANOUS COLITIS
     Dosage: 0.5 G/DAY, UNKNOWN FREQ.
     Route: 048
     Dates: start: 20190511, end: 20190518
  23. CEFTAZIDIME. [Concomitant]
     Active Substance: CEFTAZIDIME
     Indication: FEBRILE NEUTROPENIA
     Dosage: 2 G/DAY, UNKNOWN FREQ.
     Route: 065
     Dates: start: 20190524, end: 20190530
  24. ITRIZOLE [Concomitant]
     Active Substance: ITRACONAZOLE
     Indication: PROPHYLAXIS
     Dosage: 10 MG/DAY, UNKNOWN FREQ.
     Route: 048
     Dates: end: 20190315

REACTIONS (8)
  - Infection [Recovered/Resolved]
  - Disseminated intravascular coagulation [Recovered/Resolved]
  - Pseudomembranous colitis [Recovered/Resolved]
  - Infection [Fatal]
  - Myelosuppression [Not Recovered/Not Resolved]
  - Myelosuppression [Fatal]
  - Hypertension [Not Recovered/Not Resolved]
  - Myelosuppression [Not Recovered/Not Resolved]

NARRATIVE: CASE EVENT DATE: 20190316
